FAERS Safety Report 4506615-4 (Version None)
Quarter: 2004Q4

REPORT INFORMATION
  Report Type: 
  Country: None (occurrence: None)
  Receive Date: 20041122
  Receipt Date: 20041021
  Transmission Date: 20050328
  Serious: Yes (Death)
  Sender: FDA-Public Use
  Company Number: GR-BRISTOL-MYERS SQUIBB COMPANY-12740593

PATIENT
  Age: 85 Year
  Sex: Female

DRUGS (6)
  1. ABILIFY [Suspect]
     Route: 048
     Dates: start: 20040928, end: 20041003
  2. DAFLON [Concomitant]
     Dosage: 500 MG, 1X3
  3. LOFTYL [Concomitant]
     Dosage: 600 MG, 1X2
  4. VASTAREL [Concomitant]
     Dosage: 20 MG, 1X3
  5. SALOSPIR [Concomitant]
     Dosage: 100 MG, 1X1
  6. MULTI-VITAMINS [Concomitant]
     Dosage: 1X2

REACTIONS (12)
  - BLOOD IRON DECREASED [None]
  - BLOOD TRIGLYCERIDES INCREASED [None]
  - BLOOD UREA INCREASED [None]
  - BUNDLE BRANCH BLOCK RIGHT [None]
  - CARDIAC ARREST [None]
  - ELECTROCARDIOGRAM REPOLARISATION ABNORMALITY [None]
  - HAEMATOCRIT DECREASED [None]
  - HAEMOGLOBIN DECREASED [None]
  - MEAN CELL HAEMOGLOBIN DECREASED [None]
  - MEAN CELL VOLUME DECREASED [None]
  - SUDDEN CARDIAC DEATH [None]
  - VENTRICULAR HYPERTROPHY [None]
